FAERS Safety Report 5795228-2 (Version None)
Quarter: 2008Q2

REPORT INFORMATION
  Report Type: 
  Country: None (occurrence: None)
  Receive Date: 20080630
  Receipt Date: 20080626
  Transmission Date: 20081010
  Serious: Yes (Hospitalization)
  Sender: FDA-Public Use
  Company Number: US-BRISTOL-MYERS SQUIBB COMPANY-14178024

PATIENT
  Age: 45 Year
  Sex: Male
  Weight: 107 kg

DRUGS (13)
  1. CISPLATIN [Suspect]
     Indication: PANCREATIC CARCINOMA
     Dosage: C1:03JAN08,186MG C2:24JAN08,184MG C3:14FEB08,136MG C4:06MAR08,137MG C5:27MAR08,136MG(LAST DOSE).
     Route: 042
     Dates: start: 20080327, end: 20080327
  2. GEMCITABINE [Suspect]
     Indication: PANCREATIC CARCINOMA
     Dosage: C1:03-10JAN08 C224JAN08 31JAN08 C314FEB08 21FEB08 C406-13MAR08 C527MAR08 03APR08 C6:24APR08
     Route: 042
     Dates: start: 20080403, end: 20080403
  3. AG-013736 [Suspect]
     Indication: PANCREATIC CARCINOMA
     Dosage: FROM 29DEC07-20JAN08, AGAIN STARTED ON 26JAN08, HELD ON 17APR08 AND RESTARTED ON 19APR08
     Route: 048
     Dates: start: 20080126
  4. VENLAFAXINE HCL [Concomitant]
     Route: 048
     Dates: start: 20040101
  5. ENOXAPARIN SODIUM [Concomitant]
     Route: 048
     Dates: start: 20070101
  6. LORTAB [Concomitant]
     Route: 048
     Dates: start: 20070301
  7. FENTANYL TRANSDERMAL SYSTEM [Concomitant]
     Route: 062
     Dates: start: 20070301
  8. ALPRAZOLAM [Concomitant]
     Route: 048
     Dates: start: 20070101
  9. ONDANSETRON [Concomitant]
     Route: 048
     Dates: start: 20080209
  10. MORPHINE SULFATE [Concomitant]
     Route: 048
     Dates: start: 20080306
  11. PLATELET CONCENTRATE, HUMAN [Concomitant]
     Route: 042
     Dates: start: 20080410, end: 20080410
  12. LEVOFLOXACIN [Concomitant]
     Route: 048
     Dates: start: 20080410, end: 20080414
  13. EPOETIN ALFA [Concomitant]
     Route: 042
     Dates: start: 20080410, end: 20080410

REACTIONS (2)
  - SYNCOPE [None]
  - TINNITUS [None]
